FAERS Safety Report 4980479-7 (Version None)
Quarter: 2006Q2

REPORT INFORMATION
  Report Type: 
  Country: None (occurrence: None)
  Receive Date: 20060424
  Receipt Date: 20060413
  Transmission Date: 20061013
  Serious: Yes (Hospitalization)
  Sender: FDA-Public Use
  Company Number: US-AMGEN-US176555

PATIENT
  Age: 23 Year
  Sex: Female

DRUGS (2)
  1. PROCRIT [Suspect]
     Indication: ANAEMIA
  2. IRON [Concomitant]

REACTIONS (2)
  - HAEMOGLOBIN DECREASED [None]
  - HOSPITALISATION [None]
